FAERS Safety Report 9487581 (Version 3)
Quarter: 2013Q3

REPORT INFORMATION
  Report Type: Spontaneous
  Country: BR (occurrence: BR)
  Receive Date: 20130829
  Receipt Date: 20130912
  Transmission Date: 20140515
  Serious: Yes (Other)
  Sender: FDA-Public Use
  Company Number: BR-ABBOTT-13X-020-1137333-00

PATIENT
  Sex: Female
  Weight: 66 kg

DRUGS (8)
  1. DEPAKENE [Suspect]
     Indication: CONVULSION
     Dosage: 1 TABLET IN THE MORNING/ 1 AT NIGHT IN DAILY
     Route: 048
  2. DEPAKENE [Suspect]
     Indication: PETIT MAL EPILEPSY
  3. DEPAKENE [Suspect]
     Indication: COMPLEX PARTIAL SEIZURES
  4. NEOSALDINA [Concomitant]
     Indication: HEADACHE
     Route: 048
  5. TENOXICAN [Concomitant]
     Indication: ARTHRALGIA
     Dosage: 1 OR 2 TABLETS, WHEN REQUIRED
     Route: 048
  6. TYLENOL [Concomitant]
     Indication: HEADACHE
     Route: 048
  7. TYLENOL [Concomitant]
     Indication: DENGUE FEVER
     Route: 048
  8. TYLENOL [Concomitant]

REACTIONS (9)
  - Hormone level abnormal [Unknown]
  - Unevaluable event [Unknown]
  - Convulsion [Recovered/Resolved]
  - Incorrect dose administered [Unknown]
  - Drug dose omission [Unknown]
  - Dengue fever [Recovered/Resolved]
  - Menopause [Unknown]
  - Stress [Unknown]
  - Dengue fever [Recovered/Resolved]
